FAERS Safety Report 4410822-9 (Version None)
Quarter: 2004Q2

REPORT INFORMATION
  Report Type: 
  Country: None (occurrence: None)
  Receive Date: 20040630
  Receipt Date: 20040506
  Transmission Date: 20050107
  Serious: No
  Sender: FDA-Public Use
  Company Number: 04P-163-0259881-00

PATIENT
  Age: 75 Year
  Sex: Female
  Weight: 86.1834 kg

DRUGS (5)
  1. HUMIRA [Suspect]
     Indication: RHEUMATOID ARTHRITIS
     Dosage: 40 MG, 1 IN 2 WK, SUBCUTANEOUS
     Route: 058
     Dates: start: 20031101, end: 20040326
  2. HYDROXYCHLOROQUINE PHOSPHATE [Concomitant]
  3. METHOTREXATE [Concomitant]
  4. CALCIUM [Concomitant]
  5. FOLIC ACID [Concomitant]

REACTIONS (3)
  - DRUG INEFFECTIVE [None]
  - FALL [None]
  - HYPOAESTHESIA [None]
